FAERS Safety Report 21047698 (Version 1)
Quarter: 2022Q3

REPORT INFORMATION
  Report Type: Spontaneous
  Country: BR (occurrence: BR)
  Receive Date: 20220706
  Receipt Date: 20220706
  Transmission Date: 20221027
  Serious: Yes (Other)
  Sender: FDA-Public Use
  Company Number: BR-NOVARTISPH-NVSC2022BR153323

PATIENT
  Sex: Female
  Weight: 88 kg

DRUGS (3)
  1. TEGRETOL XR [Suspect]
     Active Substance: CARBAMAZEPINE
     Indication: Seizure
     Dosage: 1 DOSAGE FORM, TID (SINCE 1986 MOR OR LESS, DOES NOT REMEMBER PRECISELY)
     Route: 048
     Dates: end: 202205
  2. ENALAPRIL [Concomitant]
     Active Substance: ENALAPRIL
     Indication: Hypertension
     Dosage: UNK UNK, QD (DAILY, IN THE MORNING)
     Route: 048
     Dates: start: 2010
  3. HYDROCHLOROTHIAZIDE [Concomitant]
     Active Substance: HYDROCHLOROTHIAZIDE
     Indication: Hypertension
     Dosage: UNK, QD (DAILY, IN THE MORNING)
     Route: 048
     Dates: start: 2010

REACTIONS (6)
  - Mouth injury [Not Recovered/Not Resolved]
  - Lip injury [Not Recovered/Not Resolved]
  - Tooth loss [Not Recovered/Not Resolved]
  - Seizure [Not Recovered/Not Resolved]
  - Fall [Not Recovered/Not Resolved]
  - Product dose omission issue [Unknown]

NARRATIVE: CASE EVENT DATE: 20100101
